FAERS Safety Report 18708241 (Version 1)
Quarter: 2021Q1

REPORT INFORMATION
  Report Type: Spontaneous
  Country: US (occurrence: US)
  Receive Date: 20210106
  Receipt Date: 20210106
  Transmission Date: 20210419
  Serious: Yes (Death, Hospitalization)
  Sender: FDA-Public Use
  Company Number: US-BAYER-2021-000334

PATIENT
  Age: 74 Year
  Sex: Male

DRUGS (3)
  1. CARBON MONOXIDE [Suspect]
     Active Substance: CARBON MONOXIDE
  2. HEROIN [Suspect]
     Active Substance: DIAMORPHINE
  3. PARACETAMOL [Suspect]
     Active Substance: ACETAMINOPHEN
     Dosage: UNK
     Route: 048

REACTIONS (3)
  - Overdose [Fatal]
  - Product use issue [Fatal]
  - Toxicity to various agents [Fatal]
